FAERS Safety Report 12755878 (Version 4)
Quarter: 2017Q3

REPORT INFORMATION
  Report Type: Spontaneous
  Country: JP (occurrence: JP)
  Receive Date: 20160916
  Receipt Date: 20170811
  Transmission Date: 20171127
  Serious: Yes (Hospitalization, Other)
  Sender: FDA-Public Use
  Company Number: PHJP2016JP026571

PATIENT
  Age: 78 Year
  Sex: Male
  Weight: 68 kg

DRUGS (2)
  1. VOTRIENT [Suspect]
     Active Substance: PAZOPANIB HYDROCHLORIDE
     Indication: RENAL CELL CARCINOMA
     Dosage: 800 MG, QD
     Route: 048
     Dates: start: 20160720, end: 20160815
  2. VOTRIENT [Suspect]
     Active Substance: PAZOPANIB HYDROCHLORIDE
     Dosage: 400 MG, QD
     Route: 048
     Dates: start: 20160816, end: 20160901

REACTIONS (8)
  - Malignant neoplasm progression [Unknown]
  - Metastases to central nervous system [Unknown]
  - Hyperthyroidism [Recovering/Resolving]
  - Hypothyroidism [Recovering/Resolving]
  - Thyroiditis [Unknown]
  - Dysphonia [Unknown]
  - Malaise [Recovering/Resolving]
  - Pyrexia [Recovering/Resolving]

NARRATIVE: CASE EVENT DATE: 20160816
